FAERS Safety Report 23250693 (Version 1)
Quarter: 2023Q4

REPORT INFORMATION
  Report Type: Spontaneous
  Country: FR (occurrence: FR)
  Receive Date: 20231201
  Receipt Date: 20231201
  Transmission Date: 20240110
  Serious: Yes (Hospitalization, Other)
  Sender: FDA-Public Use
  Company Number: None

PATIENT
  Age: 50 Year
  Sex: Female
  Weight: 71 kg

DRUGS (1)
  1. KEYTRUDA [Suspect]
     Active Substance: PEMBROLIZUMAB
     Indication: Breast cancer
     Dosage: 200 MILLIGRAM
     Route: 042
     Dates: start: 20220817, end: 20220906

REACTIONS (1)
  - Acute lymphocytic leukaemia [Not Recovered/Not Resolved]

NARRATIVE: CASE EVENT DATE: 20231030
